FAERS Safety Report 13782576 (Version 9)
Quarter: 2018Q4

REPORT INFORMATION
  Report Type: Spontaneous
  Country: KR (occurrence: KR)
  Receive Date: 20170724
  Receipt Date: 20181214
  Transmission Date: 20190204
  Serious: Yes (Hospitalization, Other)
  Sender: FDA-Public Use
  Company Number: KP-009507513-1707KOR005980

PATIENT
  Age: 48 Year
  Sex: Female
  Weight: 55.1 kg

DRUGS (17)
  1. MYAMBUTOL [Concomitant]
     Active Substance: ETHAMBUTOL HYDROCHLORIDE
     Indication: PULMONARY TUBERCULOSIS
     Dosage: 800 MILLIGRAM, QD
     Route: 048
     Dates: start: 20170124
  2. SMOFKABIVEN [Concomitant]
     Active Substance: AMINO ACIDS\DEXTROSE\ELECTROLYTES NOS\SOYBEAN OIL
     Indication: PROPHYLAXIS
     Dosage: 986 MILLILITER, ONCE DAILY
     Route: 042
     Dates: start: 20170516, end: 20170620
  3. CIPOL N [Concomitant]
     Indication: PROPHYLAXIS
     Dosage: 50 MILLIGRAM, ONCE DAILY, STRENGTH: 250MG/5ML
     Route: 042
     Dates: start: 20170517, end: 20170614
  4. URSA TABLETS [Concomitant]
     Indication: PROPHYLAXIS
     Dosage: 100 MILLIGRAM, TID
     Route: 048
     Dates: start: 20170509, end: 20170628
  5. MYCOBUTIN [Concomitant]
     Active Substance: RIFABUTIN
     Indication: PULMONARY TUBERCULOSIS
     Dosage: 450 MILLIGRAM, QD
     Route: 048
     Dates: start: 20170510
  6. THIAMINE HYDROCHLORIDE. [Concomitant]
     Active Substance: THIAMINE HYDROCHLORIDE
     Indication: PROPHYLAXIS
     Dosage: 100 MILLIGRAM, QD
     Route: 042
     Dates: start: 20170527, end: 20170627
  7. SOLONDO [Concomitant]
     Active Substance: PREDNISOLONE
     Indication: GRAFT VERSUS HOST DISEASE IN SKIN
     Dosage: 5 MILLIGRAM, QD
     Route: 048
     Dates: start: 20170614
  8. SOLONDO [Concomitant]
     Active Substance: PREDNISOLONE
     Indication: GRAFT VERSUS HOST DISEASE IN SKIN
     Dosage: 10 MILLIGRAM, TID
     Route: 048
     Dates: start: 20170607
  9. PARIET [Concomitant]
     Active Substance: RABEPRAZOLE SODIUM
     Indication: PROPHYLAXIS AGAINST GASTROINTESTINAL ULCER
     Dosage: 20 MILLIGRAM, QD
     Route: 048
     Dates: start: 20170614, end: 20170628
  10. NOXAFIL [Suspect]
     Active Substance: POSACONAZOLE
     Indication: ANTIFUNGAL PROPHYLAXIS
     Dosage: 300 MILLIGRAM, TWICE A DAY
     Route: 048
     Dates: start: 20170609, end: 20170609
  11. NOXAFIL [Suspect]
     Active Substance: POSACONAZOLE
     Dosage: 300 MILLIGRAM, ONCE A DAY
     Route: 048
     Dates: start: 20170610, end: 20171012
  12. SEPTRIN [Concomitant]
     Active Substance: SULFAMETHOXAZOLE\TRIMETHOPRIM
     Indication: OPPORTUNISTIC INFECTION PROPHYLAXIS
     Dosage: 1 DOSAGE FORM, QD
     Route: 048
     Dates: start: 20170605
  13. THIAMINE HYDROCHLORIDE. [Concomitant]
     Active Substance: THIAMINE HYDROCHLORIDE
     Dosage: 50 MILLIGRAM, QD
     Route: 042
     Dates: start: 20170715, end: 20170725
  14. VALCYTE [Concomitant]
     Active Substance: VALGANCICLOVIR HYDROCHLORIDE
     Indication: CYTOMEGALOVIRUS CHORIORETINITIS
     Dosage: 900 MILLIGRAM, QD
     Route: 048
     Dates: start: 20170628, end: 20170710
  15. PANTOLOC [Concomitant]
     Active Substance: PANTOPRAZOLE SODIUM
     Indication: PROPHYLAXIS AGAINST GASTROINTESTINAL ULCER
     Dosage: 40 MILLIGRAM, TWICE DAY
     Route: 042
     Dates: start: 20170528, end: 20170613
  16. CIPOL N [Concomitant]
     Indication: GRAFT VERSUS HOST DISEASE IN SKIN
     Dosage: 100 MILLIGRAM, QD
     Route: 048
     Dates: start: 20170615
  17. CRAVIT [Concomitant]
     Active Substance: LEVOFLOXACIN
     Indication: PULMONARY TUBERCULOSIS
     Dosage: 500 MILLIGRAM, QD
     Route: 048
     Dates: start: 20170216

REACTIONS (2)
  - Bronchitis [Recovered/Resolved]
  - Graft versus host disease in gastrointestinal tract [Recovered/Resolved]

NARRATIVE: CASE EVENT DATE: 20170626
